FAERS Safety Report 5913659-4 (Version None)
Quarter: 2008Q4

REPORT INFORMATION
  Report Type: 
  Country: None (occurrence: None)
  Receive Date: 20081009
  Receipt Date: 20080417
  Transmission Date: 20090506
  Serious: Yes (Other)
  Sender: FDA-Public Use
  Company Number: US-AVENTIS-200812438US

PATIENT
  Age: 47 Year
  Sex: Female

DRUGS (2)
  1. LOVENOX [Suspect]
     Dates: start: 20080401, end: 20080401
  2. ASPIRIN [Concomitant]
     Dosage: DOSE: UNK

REACTIONS (2)
  - ANGIOEDEMA [None]
  - DRUG EXPOSURE DURING PREGNANCY [None]
